FAERS Safety Report 4337398-9 (Version None)
Quarter: 2004Q2

REPORT INFORMATION
  Report Type: 
  Country: None (occurrence: None)
  Receive Date: 20040408
  Receipt Date: 20040326
  Transmission Date: 20050107
  Serious: Yes (Hospitalization)
  Sender: FDA-Public Use
  Company Number: 2004020592

PATIENT
  Age: 44 Year
  Sex: Female

DRUGS (3)
  1. TAHOR (ATORVASTATIN) [Suspect]
     Indication: ILL-DEFINED DISORDER
     Dosage: 20 MG (ORAL)
     Route: 048
     Dates: start: 20040113, end: 20040126
  2. DILTIAZEM HYDROCHLORIDE [Suspect]
     Indication: ILL-DEFINED DISORDER
     Dosage: 300 MG, ORAL
     Route: 048
     Dates: start: 20040113, end: 20040126
  3. CHLORMETHINE (CHLORMETHINE) [Suspect]
     Indication: ILL-DEFINED DISORDER
     Dosage: 60 MG, TRANSDERMAL
     Route: 062
     Dates: start: 20040113, end: 20040121

REACTIONS (1)
  - TOXIC EPIDERMAL NECROLYSIS [None]
